FAERS Safety Report 23064954 (Version 1)
Quarter: 2023Q4

REPORT INFORMATION
  Report Type: Spontaneous
  Country: US (occurrence: US)
  Receive Date: 20231013
  Receipt Date: 20231013
  Transmission Date: 20240110
  Serious: No
  Sender: FDA-Public Use
  Company Number: US-PFIZER INC-202300314699

PATIENT
  Age: 65 Year
  Sex: Male

DRUGS (2)
  1. TAFAMIDIS [Suspect]
     Active Substance: TAFAMIDIS
     Indication: Cardiac amyloidosis
     Dosage: UNK
  2. PATISIRAN [Concomitant]
     Active Substance: PATISIRAN
     Dosage: UNK

REACTIONS (2)
  - Diastolic dysfunction [Unknown]
  - Disease progression [Unknown]
